FAERS Safety Report 21456659 (Version 1)
Quarter: 2022Q4

REPORT INFORMATION
  Report Type: Spontaneous
  Country: US (occurrence: US)
  Receive Date: 20221014
  Receipt Date: 20221014
  Transmission Date: 20230112
  Serious: No
  Sender: FDA-Public Use
  Company Number: US-TEVA-2022-US-2078548

PATIENT
  Age: 77 Year
  Sex: Female

DRUGS (9)
  1. ESTRADIOL [Suspect]
     Active Substance: ESTRADIOL
     Indication: Menopausal symptoms
     Dosage: .5 MILLIGRAM DAILY;
     Route: 048
     Dates: start: 202208
  2. ESTRADIOL [Suspect]
     Active Substance: ESTRADIOL
     Indication: Hot flush
  3. ESTRADIOL [Suspect]
     Active Substance: ESTRADIOL
     Indication: Hyperhidrosis
  4. ATORVASTATIN [Concomitant]
     Active Substance: ATORVASTATIN
     Indication: Cardiac disorder
     Route: 065
  5. JANUVIA [Concomitant]
     Active Substance: SITAGLIPTIN PHOSPHATE
     Indication: Diabetes mellitus
     Route: 065
  6. EDARBI [Concomitant]
     Active Substance: AZILSARTAN KAMEDOXOMIL
     Indication: Blood pressure abnormal
     Route: 065
  7. estrogen supplements [Concomitant]
     Indication: Product used for unknown indication
     Route: 065
  8. OTC Benadryl [Concomitant]
     Indication: Pruritus
     Route: 065
  9. Tylenol Arthritic [Concomitant]
     Indication: Arthralgia
     Route: 065

REACTIONS (6)
  - Rash [Not Recovered/Not Resolved]
  - Food allergy [Unknown]
  - Feeling abnormal [Unknown]
  - Allergic reaction to excipient [Unknown]
  - Arthralgia [Not Recovered/Not Resolved]
  - Rash pruritic [Not Recovered/Not Resolved]

NARRATIVE: CASE EVENT DATE: 20220101
